FAERS Safety Report 4581968-X (Version None)
Quarter: 2005Q1

REPORT INFORMATION
  Report Type: 
  Country: None (occurrence: None)
  Receive Date: 20050119
  Receipt Date: 20040205
  Transmission Date: 20050727
  Serious: Yes (Other)
  Sender: FDA-Public Use
  Company Number: US-JNJFOC-20040202048

PATIENT
  Age: 64 Year
  Sex: Female
  Weight: 63.9572 kg

DRUGS (2)
  1. DOXIL [Suspect]
     Indication: FALLOPIAN TUBE CANCER
     Dosage: INTRAVENOUS
     Route: 042
     Dates: start: 20020801, end: 20030101
  2. PROCRIT [Suspect]
     Indication: ANAEMIA OF MALIGNANT DISEASE
     Dosage: 40000 IU, 1 IN 1 WEEK, SUBCUTANEOUS
     Route: 058
     Dates: start: 20030911

REACTIONS (1)
  - FALLOPIAN TUBE CANCER [None]
